FAERS Safety Report 24815127 (Version 3)
Quarter: 2025Q2

REPORT INFORMATION
  Report Type: Spontaneous
  Country: JP (occurrence: JP)
  Receive Date: 20250107
  Receipt Date: 20250402
  Transmission Date: 20250716
  Serious: No
  Sender: BAYER
  Company Number: JP-BAYER-2025A002236

PATIENT
  Age: 28 Year
  Sex: Female
  Weight: 66 kg

DRUGS (1)
  1. IOPROMIDE [Suspect]
     Active Substance: IOPROMIDE
     Indication: Computerised tomogram
     Route: 042
     Dates: start: 20241220, end: 20241220

REACTIONS (3)
  - Eczema [Recovering/Resolving]
  - Rash [None]
  - Oxygen saturation decreased [Recovered/Resolved]

NARRATIVE: CASE EVENT DATE: 20241220
